FAERS Safety Report 10200592 (Version 2)
Quarter: 2014Q2

REPORT INFORMATION
  Report Type: Spontaneous
  Country: US (occurrence: US)
  Receive Date: 20140528
  Receipt Date: 20140606
  Transmission Date: 20141212
  Serious: No
  Sender: FDA-Public Use
  Company Number: US-009507513-1405USA007098

PATIENT
  Age: 53 Year
  Sex: Female
  Weight: 81.63 kg

DRUGS (11)
  1. OXYTROL FOR WOMEN [Suspect]
     Indication: POLLAKIURIA
     Dosage: 1 DF, Q4D
     Route: 062
     Dates: start: 20140101, end: 20140228
  2. OXYTROL FOR WOMEN [Suspect]
     Indication: MICTURITION URGENCY
  3. AMBIEN [Concomitant]
     Indication: PRODUCT USED FOR UNKNOWN INDICATION
     Dosage: UNK, UNKNOWN
  4. VICODIN [Concomitant]
     Indication: PRODUCT USED FOR UNKNOWN INDICATION
     Dosage: UNK, UNKNOWN
  5. XANAX [Concomitant]
     Indication: ANXIETY
     Dosage: UNK, UNKNOWN
  6. XANAX [Concomitant]
     Indication: STRESS
  7. NEXIUM [Concomitant]
     Indication: IRRITABLE BOWEL SYNDROME
     Dosage: UNK, UNKNOWN
  8. NEXIUM [Concomitant]
     Indication: GASTROOESOPHAGEAL REFLUX DISEASE
  9. NEXIUM [Concomitant]
     Indication: GASTRITIS
  10. BENICAR [Concomitant]
     Indication: HYPERTENSION
     Dosage: UNK, UNKNOWN
  11. ZYRTEC [Concomitant]
     Indication: VERTIGO POSITIONAL
     Dosage: UNK, UNKNOWN

REACTIONS (5)
  - Hot flush [Recovered/Resolved]
  - Dry mouth [Recovered/Resolved]
  - Application site irritation [Recovered/Resolved]
  - Off label use [Unknown]
  - Drug ineffective [Unknown]
